FAERS Safety Report 6854101-9 (Version None)
Quarter: 2010Q3

REPORT INFORMATION
  Report Type: 
  Country: None (occurrence: None)
  Receive Date: 20100717
  Receipt Date: 20080113
  Transmission Date: 20110219
  Serious: No
  Sender: FDA-Public Use
  Company Number: US-PFIZER INC-2008000487

PATIENT
  Sex: Female
  Weight: 59 kg

DRUGS (7)
  1. CHANTIX [Suspect]
     Indication: SMOKING CESSATION THERAPY
     Dates: start: 20071229
  2. ADVAIR DISKUS 100/50 [Concomitant]
  3. WELLBUTRIN [Concomitant]
  4. ANTI-ASTHMATICS [Concomitant]
     Route: 055
  5. PREDNISONE [Concomitant]
  6. MONTELUKAST SODIUM [Concomitant]
  7. SPIRIVA [Concomitant]

REACTIONS (4)
  - ANAEMIA [None]
  - DRUG INEFFECTIVE [None]
  - VOMITING [None]
  - WHITE BLOOD CELL COUNT INCREASED [None]
